FAERS Safety Report 9173151 (Version 2)
Quarter: 2013Q3

REPORT INFORMATION
  Report Type: Spontaneous
  Country: US (occurrence: US)
  Receive Date: 20130320
  Receipt Date: 20130711
  Transmission Date: 20140515
  Serious: No
  Sender: FDA-Public Use
  Company Number: US-BIOGENIDEC-2013BI024675

PATIENT
  Sex: Female

DRUGS (1)
  1. TYSABRI [Suspect]
     Indication: MULTIPLE SCLEROSIS
     Route: 042
     Dates: start: 20120607, end: 201212

REACTIONS (6)
  - Drug ineffective [Recovered/Resolved]
  - Amnesia [Recovered/Resolved]
  - Pupils unequal [Recovered/Resolved with Sequelae]
  - Multiple sclerosis [Not Recovered/Not Resolved]
  - Speech disorder [Recovered/Resolved]
  - Pupillary disorder [Not Recovered/Not Resolved]
